FAERS Safety Report 24820320 (Version 1)
Quarter: 2025Q1

REPORT INFORMATION
  Report Type: Spontaneous
  Country: US (occurrence: US)
  Receive Date: 20250108
  Receipt Date: 20250108
  Transmission Date: 20250408
  Serious: Yes (Death)
  Sender: PERRIGO
  Company Number: US-PERRIGO-25US000309

PATIENT
  Age: 11 Year
  Sex: Female

DRUGS (5)
  1. IBUPROFEN [Suspect]
     Active Substance: IBUPROFEN
     Indication: Accidental exposure to product by child
     Route: 048
  2. ACETAMINOPHEN [Suspect]
     Active Substance: ACETAMINOPHEN
     Indication: Headache
     Route: 048
  3. WATER [Suspect]
     Active Substance: WATER
     Indication: Accidental exposure to product by child
     Route: 048
  4. HYDROXYZINE [Suspect]
     Active Substance: HYDROXYZINE HYDROCHLORIDE
     Indication: Accidental exposure to product by child
     Route: 048
  5. SERTRALINE [Suspect]
     Active Substance: SERTRALINE HYDROCHLORIDE
     Indication: Accidental exposure to product by child
     Route: 048

REACTIONS (6)
  - Accidental exposure to product by child [Fatal]
  - Seizure [Fatal]
  - Hypoxia [Fatal]
  - Brain oedema [Fatal]
  - Intracranial pressure increased [Fatal]
  - Diabetes insipidus [Fatal]

NARRATIVE: CASE EVENT DATE: 20230101
